FAERS Safety Report 10098296 (Version 1)
Quarter: 2014Q2

REPORT INFORMATION
  Report Type: Spontaneous
  Country: US (occurrence: None)
  Receive Date: 20140422
  Receipt Date: 20140422
  Transmission Date: 20141212
  Serious: Yes (Hospitalization)
  Sender: FDA-Public Use
  Company Number: None

PATIENT
  Age: 63 Year
  Sex: Male
  Weight: 101.6 kg

DRUGS (1)
  1. SERTRALINE [Suspect]
     Indication: COGNITIVE DISORDER
     Route: 048
     Dates: start: 20140210, end: 20140226

REACTIONS (5)
  - Dizziness [None]
  - Memory impairment [None]
  - Condition aggravated [None]
  - Subdural haemorrhage [None]
  - Dysarthria [None]
